FAERS Safety Report 15985514 (Version 1)
Quarter: 2019Q1

REPORT INFORMATION
  Report Type: Spontaneous
  Country: US (occurrence: US)
  Receive Date: 20190220
  Receipt Date: 20190220
  Transmission Date: 20190418
  Serious: Yes (Hospitalization)
  Sender: FDA-Public Use
  Company Number: None

PATIENT
  Age: 70 Year
  Sex: Male

DRUGS (9)
  1. ROSUVASTATIN 20 MG TABLETS [Concomitant]
     Dates: start: 20181101
  2. SILDENAFIL. [Suspect]
     Active Substance: SILDENAFIL
     Indication: PULMONARY HYPERTENSION
     Route: 048
  3. LABETALOL 100 MG TABLETS [Concomitant]
     Dates: start: 20180711
  4. JANUVIA 100 MG TABLETS [Concomitant]
     Dates: start: 20180926
  5. ALLOPURINOL 300 MG TABLETS [Concomitant]
     Active Substance: ALLOPURINOL
     Dates: start: 20180806
  6. LISINOPRIL 20 MG TABLETS [Concomitant]
     Active Substance: LISINOPRIL
     Dates: start: 20181210
  7. BUMETADINE 2 MG TABLETS [Concomitant]
     Dates: start: 20180906
  8. RANEXA 500 MG TABLETS [Concomitant]
     Dates: start: 20180607
  9. LEVOTHYROXINE 75 MCG TABLETS [Concomitant]
     Dates: start: 20190107

REACTIONS (1)
  - Oesophageal carcinoma [None]

NARRATIVE: CASE EVENT DATE: 20190219
